FAERS Safety Report 8247609-5 (Version None)
Quarter: 2012Q1

REPORT INFORMATION
  Report Type: 
  Country: None (occurrence: None)
  Receive Date: 20120330
  Receipt Date: 20120323
  Transmission Date: 20120608
  Serious: Yes (Other)
  Sender: FDA-Public Use
  Company Number: US-BAYER-2012-018723

PATIENT
  Age: 25 Year
  Sex: Female

DRUGS (8)
  1. DROSPIRENONE AND ETHINYL ESTRADIOL [Suspect]
     Route: 048
  2. AMBIEN [Concomitant]
     Dosage: 12.5 MG, QD
     Dates: start: 20090612
  3. MIDRIN [Concomitant]
     Indication: MIGRAINE
     Dosage: UNK
     Dates: start: 20090727
  4. PHENTERMINE [Concomitant]
     Dosage: 30 MG, QD
     Dates: start: 20090612
  5. GARDASIL [Concomitant]
     Dosage: UNK
     Dates: start: 20090709
  6. NORVASC [Concomitant]
     Dosage: UNK
     Dates: start: 20090709
  7. AMLODIPINE [Concomitant]
     Dosage: 5 MG, QD
     Dates: start: 20090612
  8. IBUPROFEN [Concomitant]
     Dosage: 800 MG, UNK
     Dates: start: 20090709

REACTIONS (2)
  - PAIN [None]
  - DEEP VEIN THROMBOSIS [None]
